FAERS Safety Report 7046097-4 (Version None)
Quarter: 2010Q4

REPORT INFORMATION
  Report Type: 
  Country: None (occurrence: None)
  Receive Date: 20101014
  Receipt Date: 20101007
  Transmission Date: 20110411
  Serious: Yes (Other)
  Sender: FDA-Public Use
  Company Number: CHPA2010US15826

PATIENT
  Age: 59 Year
  Sex: Female
  Weight: 72.562 kg

DRUGS (2)
  1. EX-LAX REG STR CHOCOLATED LAX PCS SEN (NCH) [Suspect]
     Indication: CONSTIPATION
     Dosage: 30 MG, ONCE/SINGLE
     Route: 048
     Dates: start: 20101006, end: 20101006
  2. EX-LAX REG STR CHOCOLATED LAX PCS SEN (NCH) [Suspect]
     Dosage: UNK, PRN
     Route: 048

REACTIONS (3)
  - DRUG INEFFECTIVE [None]
  - NAUSEA [None]
  - ROTATOR CUFF REPAIR [None]
